FAERS Safety Report 7362330-3 (Version None)
Quarter: 2011Q1

REPORT INFORMATION
  Report Type: 
  Country: None (occurrence: None)
  Receive Date: 20110318
  Receipt Date: 20110309
  Transmission Date: 20110831
  Serious: Yes (Other)
  Sender: FDA-Public Use
  Company Number: US-US-EMD SERONO, INC.-231506J10USA

PATIENT
  Sex: Female

DRUGS (2)
  1. REBIF [Suspect]
     Indication: MULTIPLE SCLEROSIS
     Route: 058
     Dates: start: 20051008, end: 20101001
  2. UNSPECIFIED MEDICATIONS [Concomitant]

REACTIONS (6)
  - INJECTION SITE NECROSIS [None]
  - INJECTION SITE NODULE [None]
  - VITAMIN D DECREASED [None]
  - BOWEN'S DISEASE [None]
  - MELANOCYTIC NAEVUS [None]
  - BLOOD ALBUMIN DECREASED [None]
